FAERS Safety Report 19311755 (Version 1)
Quarter: 2021Q2

REPORT INFORMATION
  Report Type: Spontaneous
  Country: US (occurrence: US)
  Receive Date: 20210527
  Receipt Date: 20210527
  Transmission Date: 20210717
  Serious: Yes (Other)
  Sender: FDA-Public Use
  Company Number: US-GLAXOSMITHKLINE-US2021GSK112143

PATIENT
  Sex: Male

DRUGS (5)
  1. RANITIDINE. [Suspect]
     Active Substance: RANITIDINE
     Indication: PANCREATITIS
     Dosage: UNK, QD
     Route: 065
     Dates: start: 200001, end: 200801
  2. RANITIDINE. [Suspect]
     Active Substance: RANITIDINE
     Indication: PANCREATITIS
     Dosage: UNK, QD
     Route: 065
     Dates: start: 200001, end: 200801
  3. ZANTAC [Suspect]
     Active Substance: RANITIDINE HYDROCHLORIDE
     Indication: PANCREATITIS
     Dosage: UNK UNK, QD
     Route: 065
     Dates: start: 200001, end: 200001
  4. ZANTAC [Suspect]
     Active Substance: RANITIDINE HYDROCHLORIDE
     Indication: PANCREATITIS
     Dosage: UNK UNK, QD
     Route: 065
     Dates: start: 200001, end: 200801
  5. ZANTAC [Suspect]
     Active Substance: RANITIDINE HYDROCHLORIDE
     Indication: PANCREATITIS
     Dosage: UNK UNK, QD
     Route: 065
     Dates: start: 200001, end: 200801

REACTIONS (1)
  - Bladder cancer [Unknown]
